FAERS Safety Report 7355684-5 (Version None)
Quarter: 2011Q1

REPORT INFORMATION
  Report Type: 
  Country: None (occurrence: None)
  Receive Date: 20110316
  Receipt Date: 20110310
  Transmission Date: 20110831
  Serious: Yes (Other)
  Sender: FDA-Public Use
  Company Number: US-ABBOTT-11P-163-0710702-00

PATIENT
  Sex: Female

DRUGS (1)
  1. DEPAKOTE [Suspect]
     Indication: DEPRESSION
     Dates: start: 19980101, end: 20020301

REACTIONS (3)
  - STILLBIRTH [None]
  - PREGNANCY [None]
  - DRUG EXPOSURE DURING PREGNANCY [None]
